FAERS Safety Report 6234010-9 (Version None)
Quarter: 2009Q2

REPORT INFORMATION
  Report Type: 
  Country: None (occurrence: None)
  Receive Date: 20090618
  Receipt Date: 20090609
  Transmission Date: 20091009
  Serious: Yes (Other)
  Sender: FDA-Public Use
  Company Number: GB-PURDUE-GBR-2009-0005228

PATIENT
  Age: 78 Year
  Sex: Female
  Weight: 70 kg

DRUGS (10)
  1. OXYCONTIN [Suspect]
     Indication: PROPHYLAXIS
     Dosage: 10 MG, BID
     Route: 048
     Dates: start: 20090514, end: 20090518
  2. CEFUROXIME [Suspect]
     Indication: DRUG USE FOR UNKNOWN INDICATION
     Dosage: 750 MG, UNK
     Route: 042
     Dates: start: 20090513, end: 20090513
  3. METRONIDAZOLE [Suspect]
     Indication: DRUG USE FOR UNKNOWN INDICATION
     Dosage: 505 MG, UNK
     Route: 042
     Dates: start: 20090513, end: 20090513
  4. ATRACURIUM [Concomitant]
     Indication: GENERAL ANAESTHESIA
     Dosage: UNK
     Dates: start: 20090513
  5. BENDROFLUMETHIAZIDE [Concomitant]
     Indication: HYPERTENSION
     Dosage: 2.5 MG, UNK
     Route: 048
  6. CYCLIZINE [Concomitant]
     Indication: NAUSEA
     Dosage: 50 MG, UNK
     Route: 042
     Dates: start: 20090513, end: 20090513
  7. FRAGMIN [Concomitant]
     Indication: PROPHYLAXIS
     Dosage: 2500 IU, UNK
     Route: 058
     Dates: start: 20090513, end: 20090522
  8. MIDAZOLAM HCL [Concomitant]
     Indication: GENERAL ANAESTHESIA
     Dosage: UNK
     Dates: start: 20090513
  9. PARACETAMOL [Concomitant]
     Indication: PAIN
     Dosage: 1 G, QID
     Route: 048
     Dates: start: 20090514
  10. PROPOFOL [Concomitant]
     Indication: GENERAL ANAESTHESIA
     Dosage: UNK
     Dates: start: 20090513

REACTIONS (1)
  - BLISTER [None]
